FAERS Safety Report 8051800-0 (Version None)
Quarter: 2012Q1

REPORT INFORMATION
  Report Type: 
  Country: None (occurrence: None)
  Receive Date: 20120118
  Receipt Date: 20120111
  Transmission Date: 20120608
  Serious: Yes (Hospitalization, Other)
  Sender: FDA-Public Use
  Company Number: FR-BRISTOL-MYERS SQUIBB COMPANY-16306797

PATIENT
  Age: 51 Year
  Sex: Female
  Weight: 95 kg

DRUGS (8)
  1. GEMCITABINE HYDROCHLORIDE [Suspect]
     Indication: NON-SMALL CELL LUNG CANCER
     Dosage: 2500MG:19OCT-29NOV11(TD:42DYS) 2300MG:30NOV-30NOV11(TD:1DY) LAST INF:30NOV11 VIAL
     Route: 042
     Dates: start: 20111019, end: 20111229
  2. LANTUS [Concomitant]
     Indication: DIABETES MELLITUS
     Dates: start: 20060101
  3. ASPIRIN [Concomitant]
     Indication: PERIPHERAL ARTERIAL OCCLUSIVE DISEASE
     Dates: start: 20090313
  4. NOVORAPID [Concomitant]
     Indication: DIABETES MELLITUS
     Dates: start: 20060101
  5. ATORVASTATIN CALCIUM [Concomitant]
     Indication: HYPERCHOLESTEROLAEMIA
     Dates: start: 20090313
  6. NICARDIPINE HCL [Concomitant]
     Indication: HYPERTENSION
     Dates: start: 20111119
  7. METFORMIN HCL [Concomitant]
     Indication: DIABETES MELLITUS
     Dates: start: 20070412
  8. CISPLATIN [Suspect]
     Indication: NON-SMALL CELL LUNG CANCER
     Dosage: 19OCT-29NOV11:150MG(TD:42DYS) 30NOV-30NOV11,135MG(TD:1DY) LAST INF:30NOV11
     Route: 042
     Dates: start: 20111019, end: 20111229

REACTIONS (5)
  - SYNCOPE [None]
  - NAUSEA [None]
  - HOSPITALISATION [None]
  - VOMITING [None]
  - MEDICATION ERROR [None]
